FAERS Safety Report 4441024-8 (Version None)
Quarter: 2004Q3

REPORT INFORMATION
  Report Type: 
  Country: None (occurrence: None)
  Receive Date: 20040902
  Receipt Date: 20040902
  Transmission Date: 20050211
  Serious: Yes (Hospitalization)
  Sender: FDA-Public Use
  Company Number: None

PATIENT
  Age: 79 Year
  Sex: Male
  Weight: 74.4 kg

DRUGS (3)
  1. CLARITHROMYCIN [Suspect]
     Indication: HELICOBACTER INFECTION
     Dosage: 500 MG BID ORAL
     Route: 048
     Dates: start: 20040602, end: 20040610
  2. FERROUS SULFATE TAB [Concomitant]
  3. METRONIDAZOLE [Concomitant]

REACTIONS (2)
  - NAUSEA [None]
  - VOMITING [None]
